FAERS Safety Report 13717102 (Version 5)
Quarter: 2017Q3

REPORT INFORMATION
  Report Type: Report from Study
  Country: IT (occurrence: IT)
  Receive Date: 20170705
  Receipt Date: 20170908
  Transmission Date: 20171127
  Serious: Yes (Death, Other)
  Sender: FDA-Public Use
  Company Number: IT-ASTELLAS-2017US026247

PATIENT
  Age: 0 Day
  Sex: Male
  Weight: 1 kg

DRUGS (14)
  1. MICAFUNGIN [Suspect]
     Active Substance: MICAFUNGIN
     Indication: FUNGAL INFECTION
     Route: 042
     Dates: end: 20170629
  2. FLEBOCORTID [Concomitant]
     Active Substance: HYDROCORTISONE SODIUM SUCCINATE
     Indication: PRODUCT USED FOR UNKNOWN INDICATION
     Dosage: 0.8 MG, X1
     Route: 042
     Dates: start: 20170629, end: 20170630
  3. MILRINONE [Concomitant]
     Active Substance: MILRINONE
     Indication: PRODUCT USED FOR UNKNOWN INDICATION
     Dosage: 0.4 ?G/KG, ONCE WEEKLY
     Route: 042
     Dates: start: 20170616, end: 20170626
  4. FENTANYL. [Concomitant]
     Active Substance: FENTANYL
     Dosage: 30 ?G/KG, PER HOUR
     Route: 042
     Dates: start: 20170628, end: 20170630
  5. CAFFEINE. [Concomitant]
     Active Substance: CAFFEINE
     Indication: PRODUCT USED FOR UNKNOWN INDICATION
     Dosage: 5 MG/KG, X1
     Route: 042
     Dates: start: 20170615, end: 20170620
  6. FENTANYL. [Concomitant]
     Active Substance: FENTANYL
     Indication: PRODUCT USED FOR UNKNOWN INDICATION
     Dosage: 30 ?G/KG, PER HOUR
     Route: 042
     Dates: start: 20170617, end: 20170623
  7. PENTAGLOBIN [Concomitant]
     Active Substance: HUMAN IMMUNOGLOBULIN G
     Indication: PRODUCT USED FOR UNKNOWN INDICATION
     Dosage: 220 MG, X1
     Route: 042
     Dates: start: 20170628, end: 20170630
  8. VASOPRESSIN. [Concomitant]
     Active Substance: VASOPRESSIN
     Indication: HYPOTENSION
     Dosage: 0.001 U/KG/MIN INFUSION 24 HOURS
     Route: 042
     Dates: start: 20170618, end: 20170627
  9. MEROPENEM. [Concomitant]
     Active Substance: MEROPENEM
     Indication: PRODUCT USED FOR UNKNOWN INDICATION
     Dosage: 20 MG/KG, X3
     Route: 042
     Dates: start: 20170616, end: 20170625
  10. PHENOBARBITAL. [Concomitant]
     Active Substance: PHENOBARBITAL
     Indication: PRODUCT USED FOR UNKNOWN INDICATION
     Dosage: 0.4 MG, X2
     Route: 042
     Dates: start: 20170616, end: 20170630
  11. DOPAMINE [Concomitant]
     Active Substance: DOPAMINE\DOPAMINE HYDROCHLORIDE
     Indication: PRODUCT USED FOR UNKNOWN INDICATION
     Route: 042
     Dates: start: 20170615, end: 20170630
  12. SILDENAFIL. [Concomitant]
     Active Substance: SILDENAFIL
     Indication: PRODUCT USED FOR UNKNOWN INDICATION
     Dosage: 2 MG/KG, X4
     Route: 042
     Dates: start: 20170615, end: 20170620
  13. MIDAZOLAM [Concomitant]
     Active Substance: MIDAZOLAM HYDROCHLORIDE
     Indication: PRODUCT USED FOR UNKNOWN INDICATION
     Route: 042
     Dates: start: 20170623, end: 20170627
  14. FLUCONAZOLE. [Concomitant]
     Active Substance: FLUCONAZOLE
     Indication: PRODUCT USED FOR UNKNOWN INDICATION
     Dosage: 3 MG/KG, EVERY 3 DAYS (PER 72 HRS)
     Route: 042
     Dates: start: 20170615, end: 20170624

REACTIONS (8)
  - Respiratory failure [Fatal]
  - Pneumothorax [Fatal]
  - Off label use [Unknown]
  - Candida sepsis [Fatal]
  - Septic shock [Fatal]
  - Intestinal perforation [Fatal]
  - Premature baby [Fatal]
  - Peritonitis [Fatal]

NARRATIVE: CASE EVENT DATE: 20170530
